FAERS Safety Report 11315288 (Version 1)
Quarter: 2015Q3

REPORT INFORMATION
  Report Type: Spontaneous
  Country: US (occurrence: US)
  Receive Date: 20150727
  Receipt Date: 20150727
  Transmission Date: 20151125
  Serious: Yes (Hospitalization, Other)
  Sender: FDA-Public Use
  Company Number: US-EMD SERONO-7014021

PATIENT
  Sex: Male
  Weight: 74 kg

DRUGS (2)
  1. REBIF [Suspect]
     Active Substance: INTERFERON BETA-1A
     Route: 058
  2. REBIF [Suspect]
     Active Substance: INTERFERON BETA-1A
     Indication: MULTIPLE SCLEROSIS
     Route: 058
     Dates: start: 20090223

REACTIONS (21)
  - Urosepsis [Recovered/Resolved]
  - Pneumonia [Unknown]
  - Spinal cord abscess [Unknown]
  - Peripheral artery aneurysm [Not Recovered/Not Resolved]
  - Aortic aneurysm [Recovering/Resolving]
  - Spinal cord disorder [Not Recovered/Not Resolved]
  - Prostate cancer [Not Recovered/Not Resolved]
  - Cardiac aneurysm [Unknown]
  - Enterococcal infection [Recovered/Resolved]
  - Escherichia urinary tract infection [Recovered/Resolved]
  - Proteus infection [Recovered/Resolved]
  - Empyema [Unknown]
  - Lung infection [Not Recovered/Not Resolved]
  - Device related infection [Not Recovered/Not Resolved]
  - Multiple sclerosis [Not Recovered/Not Resolved]
  - Gynaecomastia [Unknown]
  - Renal failure [Not Recovered/Not Resolved]
  - Ureteric injury [Recovered/Resolved]
  - Staphylococcal infection [Unknown]
  - Pancreatitis [Unknown]
  - Urinary incontinence [Unknown]

NARRATIVE: CASE EVENT DATE: 2009
